FAERS Safety Report 8273923-3 (Version None)
Quarter: 2012Q2

REPORT INFORMATION
  Report Type: 
  Country: None (occurrence: None)
  Receive Date: 20120411
  Receipt Date: 20120330
  Transmission Date: 20120825
  Serious: Yes (Hospitalization)
  Sender: FDA-Public Use
  Company Number: US-ELI_LILLY_AND_COMPANY-US201201002268

PATIENT
  Sex: Female

DRUGS (4)
  1. FORTEO [Suspect]
     Indication: OSTEOPOROSIS
     Dosage: 20 UG, QD
     Route: 065
     Dates: start: 20100801
  2. FORTEO [Suspect]
     Dosage: 20 UG, QD
     Route: 065
  3. VITAMIN B-12 [Concomitant]
  4. CALCIUM CARBONATE [Concomitant]

REACTIONS (3)
  - LOWER LIMB FRACTURE [None]
  - FLATULENCE [None]
  - FALL [None]
